FAERS Safety Report 23180592 (Version 2)
Quarter: 2023Q4

REPORT INFORMATION
  Report Type: Other
  Country: US (occurrence: None)
  Receive Date: 20231114
  Receipt Date: 20231123
  Transmission Date: 20240110
  Serious: No
  Sender: FDA-Public Use
  Company Number: US-ROCHE-3457115

PATIENT
  Age: 44 Year

DRUGS (1)
  1. OCREVUS [Suspect]
     Active Substance: OCRELIZUMAB
     Indication: Relapsing multiple sclerosis
     Dosage: DATE OF SERVICE: 13/APR/2022, 27/OCT/2022, 27/APR/2023
     Route: 065
     Dates: start: 20190211

REACTIONS (1)
  - COVID-19 [Unknown]
